FAERS Safety Report 9240035 (Version 5)
Quarter: 2013Q2

REPORT INFORMATION
  Report Type: Report from Study
  Country: US (occurrence: US)
  Receive Date: 20130418
  Receipt Date: 20130606
  Transmission Date: 20140414
  Serious: Yes (Death, Hospitalization, Other)
  Sender: FDA-Public Use
  Company Number: US-MILLENNIUM PHARMACEUTICALS, INC.-2013-02745

PATIENT
  Age: 12 Year
  Sex: Female
  Weight: 68.7 kg

DRUGS (6)
  1. VELCADE [Suspect]
     Indication: ACUTE MYELOID LEUKAEMIA
     Dosage: 2.29 MG, CYCLIC
     Route: 040
     Dates: start: 20130404, end: 20130404
  2. CYTARABINE [Suspect]
     Indication: ACUTE MYELOID LEUKAEMIA
     Dosage: 70 MG, CYCLIC
     Route: 037
     Dates: start: 20130404, end: 20130404
  3. CYTARABINE [Suspect]
     Dosage: 176 MG, CYCLIC
     Route: 042
     Dates: start: 20130404, end: 20130408
  4. ETOPOSIDE [Suspect]
     Indication: ACUTE MYELOID LEUKAEMIA
     Dosage: 176 MG, CYCLIC
     Route: 042
     Dates: start: 20130404, end: 20130404
  5. DAUNORUBICIN HYDROCHLORIDE [Suspect]
     Indication: ACUTE MYELOID LEUKAEMIA
     Dosage: 88 MG, CYCLIC
     Route: 042
     Dates: start: 20130404, end: 20130404
  6. FLUCONAZOLE [Concomitant]
     Indication: PROPHYLAXIS

REACTIONS (9)
  - Cardiac failure [Fatal]
  - Sinus tachycardia [Recovered/Resolved with Sequelae]
  - Hypersensitivity [Recovered/Resolved with Sequelae]
  - Hypotension [Recovered/Resolved]
  - Peripheral sensory neuropathy [Unknown]
  - Hyponatraemia [Recovered/Resolved]
  - Alanine aminotransferase increased [Recovering/Resolving]
  - Aspartate aminotransferase increased [Recovering/Resolving]
  - Cardiac failure [Unknown]
